FAERS Safety Report 5933788-9 (Version None)
Quarter: 2008Q4

REPORT INFORMATION
  Report Type: 
  Country: None (occurrence: None)
  Receive Date: 20081024
  Receipt Date: 20081015
  Transmission Date: 20090506
  Serious: Yes (Hospitalization)
  Sender: FDA-Public Use
  Company Number: GXKR2008GB04183

PATIENT
  Age: 53 Year
  Sex: Female

DRUGS (7)
  1. FLUOXETINE [Suspect]
     Indication: FATIGUE
     Dosage: 40 MG, QD,
  2. MODAFINIL [Concomitant]
  3. AMANTADINE HCL [Concomitant]
  4. OXYBUTYNIN CHLORIDE [Concomitant]
  5. INTERFERON BETA (INTERFERON BETA) [Concomitant]
  6. BACLOFEN [Concomitant]
  7. SYNTHROID [Concomitant]

REACTIONS (6)
  - AFFECT LABILITY [None]
  - DELIRIUM [None]
  - DIARRHOEA [None]
  - DRUG WITHDRAWAL SYNDROME [None]
  - HALLUCINATIONS, MIXED [None]
  - INFLUENZA LIKE ILLNESS [None]
